FAERS Safety Report 15762679 (Version 1)
Quarter: 2018Q4

REPORT INFORMATION
  Report Type: Report from Study
  Country: US (occurrence: US)
  Receive Date: 20181226
  Receipt Date: 20181226
  Transmission Date: 20190205
  Serious: Yes (Death)
  Sender: FDA-Public Use
  Company Number: US-ACTELION-A-US2018-173864

PATIENT
  Age: 84 Year
  Sex: Female
  Weight: 57.6 kg

DRUGS (2)
  1. OPSUMIT [Suspect]
     Active Substance: MACITENTAN
     Indication: PULMONARY ARTERIAL HYPERTENSION
     Dosage: 10 MG, QD
     Route: 048
  2. FLUTICASONE. [Concomitant]
     Active Substance: FLUTICASONE

REACTIONS (4)
  - Death [Fatal]
  - Nasal congestion [Unknown]
  - Epistaxis [Unknown]
  - Hypotension [Unknown]

NARRATIVE: CASE EVENT DATE: 20181209
